FAERS Safety Report 9339364 (Version 1)
Quarter: 2013Q2

REPORT INFORMATION
  Report Type: Spontaneous
  Country: US (occurrence: US)
  Receive Date: 20130610
  Receipt Date: 20130610
  Transmission Date: 20140414
  Serious: Yes (Hospitalization)
  Sender: FDA-Public Use
  Company Number: US-BAYER-2013-070863

PATIENT
  Age: 45 Year
  Sex: Female
  Weight: 56.69 kg

DRUGS (4)
  1. YASMIN [Suspect]
  2. ASACOL [Concomitant]
     Dosage: 1600 MG, BID
     Route: 048
     Dates: start: 20120825
  3. PREDNISONE [Concomitant]
     Dosage: 10 MG DAILY, 20 MG WHEN HAS FLARE
     Route: 048
     Dates: start: 20120825
  4. MESALAMINE [Concomitant]
     Dosage: 1600 MG, BID
     Route: 048

REACTIONS (1)
  - Pulmonary embolism [None]
